FAERS Safety Report 13564539 (Version 1)
Quarter: 2017Q2

REPORT INFORMATION
  Report Type: Report from Study
  Country: None (occurrence: FI)
  Receive Date: 20170519
  Receipt Date: 20170519
  Transmission Date: 20170830
  Serious: No
  Sender: FDA-Public Use
  Company Number: FI-ABBVIE-16P-055-1738304-00

PATIENT
  Age: 59 Year
  Sex: Male

DRUGS (9)
  1. PREDNISOLON (PREDNISOLONE) [Concomitant]
  2. PREDNISOLON (PREDNISOLONE) [Concomitant]
     Indication: PYREXIA
     Dates: start: 20160803, end: 20160825
  3. VENETOCLAX [Suspect]
     Active Substance: VENETOCLAX
     Route: 048
     Dates: start: 20160908, end: 20160914
  4. VENETOCLAX [Suspect]
     Active Substance: VENETOCLAX
     Route: 048
     Dates: start: 20160831, end: 20160907
  5. PREDNISOLON (PREDNISOLONE) [Concomitant]
     Indication: LYMPHADENOPATHY
     Dates: start: 20160826, end: 20160831
  6. VENETOCLAX [Suspect]
     Active Substance: VENETOCLAX
     Indication: CHRONIC LYMPHOCYTIC LEUKAEMIA
     Route: 048
     Dates: start: 20160818, end: 20160824
  7. VENETOCLAX [Suspect]
     Active Substance: VENETOCLAX
     Route: 048
     Dates: start: 20160825, end: 20160830
  8. VENETOCLAX [Suspect]
     Active Substance: VENETOCLAX
     Route: 048
     Dates: start: 20160915
  9. PREDNISOLON (PREDNISOLONE) [Concomitant]
     Dates: start: 20160901

REACTIONS (9)
  - Pyrexia [Recovered/Resolved]
  - Laboratory test abnormal [Recovered/Resolved]
  - Bradycardia [Unknown]
  - Blood uric acid decreased [Recovered/Resolved]
  - Blood calcium decreased [Recovered/Resolved]
  - Frequent bowel movements [Not Recovered/Not Resolved]
  - Blood uric acid decreased [Recovered/Resolved]
  - Mucous stools [Recovered/Resolved]
  - Flatulence [Not Recovered/Not Resolved]

NARRATIVE: CASE EVENT DATE: 20160818
